FAERS Safety Report 8362250-1 (Version None)
Quarter: 2012Q2

REPORT INFORMATION
  Report Type: 
  Country: None (occurrence: None)
  Receive Date: 20120515
  Receipt Date: 20120509
  Transmission Date: 20120825
  Serious: Yes (Death)
  Sender: FDA-Public Use
  Company Number: US-BAYER-2012-046742

PATIENT
  Age: 17 Year
  Sex: Female

DRUGS (7)
  1. CIPRODEX [Concomitant]
  2. ROCEPHIN [Concomitant]
  3. YAZ [Suspect]
  4. DROSPIRENONE AND ETHINYL ESTRADIOL [Suspect]
  5. AMOX-CLAV TABLETS [Concomitant]
  6. GARDASIL [Concomitant]
  7. AUGMENTIN [Concomitant]

REACTIONS (2)
  - PULMONARY EMBOLISM [None]
  - DEEP VEIN THROMBOSIS [None]
